FAERS Safety Report 11151307 (Version 3)
Quarter: 2016Q2

REPORT INFORMATION
  Report Type: Spontaneous
  Country: AU (occurrence: AU)
  Receive Date: 20150601
  Receipt Date: 20160530
  Transmission Date: 20160815
  Serious: Yes (Other)
  Sender: FDA-Public Use
  Company Number: AU-JNJFOC-20150512598

PATIENT
  Age: 56 Year
  Sex: Male

DRUGS (9)
  1. RITUXIMAB [Concomitant]
     Active Substance: RITUXIMAB
     Indication: ANAPHYLACTIC REACTION
     Route: 065
     Dates: start: 2015
  2. HUMIRA [Suspect]
     Active Substance: ADALIMUMAB
     Indication: PRODUCT USED FOR UNKNOWN INDICATION
     Route: 065
     Dates: start: 2013
  3. ETRETINATE [Concomitant]
     Active Substance: ETRETINATE
     Indication: MUSCLE ATROPHY
     Route: 065
  4. STELARA [Suspect]
     Active Substance: USTEKINUMAB
     Indication: PRODUCT USED FOR UNKNOWN INDICATION
     Route: 058
     Dates: start: 2012, end: 2012
  5. ACITRETIN. [Concomitant]
     Active Substance: ACITRETIN
     Indication: JAUNDICE
     Route: 065
  6. ACITRETIN. [Concomitant]
     Active Substance: ACITRETIN
     Indication: MUSCLE ATROPHY
     Route: 065
  7. ETRETINATE [Concomitant]
     Active Substance: ETRETINATE
     Indication: JAUNDICE
     Route: 065
  8. ACITRETIN. [Concomitant]
     Active Substance: ACITRETIN
     Indication: SKIN BURNING SENSATION
     Route: 065
  9. ETRETINATE [Concomitant]
     Active Substance: ETRETINATE
     Indication: NAUSEA
     Route: 065

REACTIONS (9)
  - Posterior reversible encephalopathy syndrome [Unknown]
  - Burkholderia pseudomallei infection [Unknown]
  - Psoriasis [Unknown]
  - Arthropathy [Not Recovered/Not Resolved]
  - Solar urticaria [Unknown]
  - Lupus-like syndrome [Unknown]
  - Transient ischaemic attack [Unknown]
  - Drug ineffective [Unknown]
  - Leukoencephalopathy [Unknown]
